FAERS Safety Report 13216700 (Version 1)
Quarter: 2017Q1

REPORT INFORMATION
  Report Type: Spontaneous
  Country: US (occurrence: US)
  Receive Date: 20170210
  Receipt Date: 20170210
  Transmission Date: 20170428
  Serious: No
  Sender: FDA-Public Use
  Company Number: US-ACORDA-ACO_124090_2016

PATIENT
  Age: 65 Year
  Sex: Female

DRUGS (1)
  1. AMPYRA [Suspect]
     Active Substance: DALFAMPRIDINE
     Indication: PRODUCT USED FOR UNKNOWN INDICATION
     Dosage: 10 MG, Q 12 HRS
     Route: 065
     Dates: start: 20160223, end: 20160612

REACTIONS (15)
  - Rhinorrhoea [Not Recovered/Not Resolved]
  - Memory impairment [Unknown]
  - Dizziness [Not Recovered/Not Resolved]
  - Nausea [Not Recovered/Not Resolved]
  - Condition aggravated [Unknown]
  - Burning sensation [Recovered/Resolved]
  - Gait disturbance [Unknown]
  - Visual acuity reduced [Unknown]
  - Arthropathy [Unknown]
  - Skin burning sensation [Recovered/Resolved]
  - Constipation [Not Recovered/Not Resolved]
  - Asthenia [Unknown]
  - Movement disorder [Unknown]
  - Muscular weakness [Unknown]
  - Vision blurred [Unknown]

NARRATIVE: CASE EVENT DATE: 2016
